FAERS Safety Report 5457229-3 (Version None)
Quarter: 2007Q3

REPORT INFORMATION
  Report Type: 
  Country: None (occurrence: None)
  Receive Date: 20070918
  Receipt Date: 20070119
  Transmission Date: 20080115
  Serious: No
  Sender: FDA-Public Use
  Company Number: US-ASTRAZENECA-2007UW01085

PATIENT
  Age: 6 Year
  Sex: Male

DRUGS (1)
  1. SEROQUEL [Suspect]
     Indication: BIPOLAR DISORDER
     Route: 048
     Dates: start: 20040101

REACTIONS (2)
  - DARK CIRCLES UNDER EYES [None]
  - ILL-DEFINED DISORDER [None]
